FAERS Safety Report 10043655 (Version 1)
Quarter: 2014Q1

REPORT INFORMATION
  Report Type: Spontaneous
  Country: US (occurrence: US)
  Receive Date: 20140328
  Receipt Date: 20140328
  Transmission Date: 20141002
  Serious: No
  Sender: FDA-Public Use
  Company Number: US-MYLANLABS-2014S1000630

PATIENT
  Sex: Female

DRUGS (3)
  1. VERAPAMIL HYDROCHLORIDE [Suspect]
     Indication: BLOOD PRESSURE INCREASED
     Dates: start: 201311
  2. XANAX [Suspect]
  3. VITAMINS [Suspect]

REACTIONS (2)
  - Drug interaction [Not Recovered/Not Resolved]
  - Flatulence [Not Recovered/Not Resolved]
